FAERS Safety Report 7231118-6 (Version None)
Quarter: 2011Q1

REPORT INFORMATION
  Report Type: 
  Country: None (occurrence: None)
  Receive Date: 20110118
  Receipt Date: 20110110
  Transmission Date: 20110831
  Serious: Yes (Hospitalization)
  Sender: FDA-Public Use
  Company Number: US-TEVA-262653USA

PATIENT
  Age: 20 Year
  Sex: Female

DRUGS (13)
  1. VINCRISTINE [Concomitant]
     Indication: NON-HODGKIN'S LYMPHOMA
  2. DOXORUBICIN HCL [Concomitant]
     Indication: NON-HODGKIN'S LYMPHOMA
  3. CYCLOPHOSPHAMIDE [Concomitant]
     Indication: NON-HODGKIN'S LYMPHOMA
  4. VINBLASTINE [Concomitant]
     Indication: NON-HODGKIN'S LYMPHOMA
  5. AMPHOTERICIN B [Concomitant]
     Indication: FUNGAL INFECTION
  6. MIDAZOLAM [Concomitant]
     Indication: SEDATION
  7. LINEZOLID [Concomitant]
     Indication: PNEUMONIA
  8. PROPOFOL [Suspect]
     Indication: SEDATION
     Route: 042
  9. FENTANYL [Concomitant]
  10. DACARBAZINE [Concomitant]
     Indication: NON-HODGKIN'S LYMPHOMA
  11. PIPERACILLIN [Concomitant]
     Indication: PNEUMONIA
  12. TAZOBACTAM [Concomitant]
     Indication: PNEUMONIA
  13. MEROPENEM [Concomitant]
     Indication: PNEUMONIA

REACTIONS (1)
  - INTRA-UTERINE DEATH [None]
